FAERS Safety Report 6600730-7 (Version None)
Quarter: 2010Q1

REPORT INFORMATION
  Report Type: 
  Country: None (occurrence: None)
  Receive Date: 20100223
  Receipt Date: 20100223
  Transmission Date: 20100710
  Serious: No
  Sender: FDA-Public Use
  Company Number: None

PATIENT
  Age: 50 Year
  Sex: Female
  Weight: 149.687 kg

DRUGS (2)
  1. LEXAPRO [Suspect]
     Indication: DEPRESSION
     Dates: start: 20060815, end: 20090506
  2. LEXAPRO [Suspect]
     Indication: IRRITABLE BOWEL SYNDROME
     Dates: start: 20060815, end: 20090506

REACTIONS (16)
  - AGORAPHOBIA [None]
  - ANXIETY [None]
  - DIZZINESS [None]
  - DRUG INEFFECTIVE [None]
  - HYPERHIDROSIS [None]
  - IMPAIRED WORK ABILITY [None]
  - INCREASED APPETITE [None]
  - INSOMNIA [None]
  - NAUSEA [None]
  - PANIC ATTACK [None]
  - PERSONALITY DISORDER [None]
  - PYREXIA [None]
  - SWOLLEN TONGUE [None]
  - VISION BLURRED [None]
  - VISUAL ACUITY REDUCED [None]
  - WEIGHT INCREASED [None]
